FAERS Safety Report 7323394-6 (Version None)
Quarter: 2011Q1

REPORT INFORMATION
  Report Type: 
  Country: None (occurrence: None)
  Receive Date: 20110301
  Receipt Date: 20110216
  Transmission Date: 20110831
  Serious: Yes (Life-Threatening, Other)
  Sender: FDA-Public Use
  Company Number: CH-SANOFI-AVENTIS-2011SA010566

PATIENT
  Sex: Female

DRUGS (14)
  1. MULTAQ [Suspect]
     Indication: ATRIAL FIBRILLATION
     Dosage: 1 OR 2 DOSES NOT GIVEN ON 21-JAN-2011 DURING PACEMAKER INSERTION
     Route: 048
     Dates: start: 20110118, end: 20110128
  2. DIGOXIN [Interacting]
     Route: 040
     Dates: start: 20110121, end: 20110122
  3. DIGOXIN [Interacting]
     Route: 040
     Dates: start: 20110123, end: 20110123
  4. TORSEMIDE [Concomitant]
     Route: 048
     Dates: end: 20110118
  5. DIGOXIN [Interacting]
     Route: 040
     Dates: start: 20110120, end: 20110120
  6. COSOPT [Interacting]
     Route: 047
     Dates: end: 20110121
  7. ASPIRIN [Concomitant]
     Route: 048
     Dates: start: 20110118, end: 20110125
  8. BELOC ZOK [Interacting]
     Route: 048
     Dates: start: 20110119, end: 20110119
  9. CALCIMAGON-D3 [Concomitant]
  10. MULTAQ [Interacting]
     Indication: ATRIAL FLUTTER
     Dosage: 1 OR 2 DOSES NOT GIVEN ON 21-JAN-2011 DURING PACEMAKER INSERTION
     Route: 048
     Dates: start: 20110118, end: 20110128
  11. BRIMONIDINE TARTRATE [Interacting]
     Route: 065
     Dates: end: 20110121
  12. BELOC [Interacting]
     Route: 040
     Dates: start: 02110118, end: 20110118
  13. BELOC ZOK [Interacting]
     Route: 048
     Dates: end: 20110118
  14. TAMOXIFEN CITRATE [Concomitant]

REACTIONS (8)
  - RENAL FAILURE ACUTE [None]
  - CYTOLYTIC HEPATITIS [None]
  - HAEMOSTASIS [None]
  - CARDIOGENIC SHOCK [None]
  - LOSS OF CONSCIOUSNESS [None]
  - ATRIAL FIBRILLATION [None]
  - BRADYCARDIA [None]
  - DRUG INTERACTION [None]
